FAERS Safety Report 9111876 (Version 1)
Quarter: 2013Q1

REPORT INFORMATION
  Report Type: Spontaneous
  Country: US (occurrence: US)
  Receive Date: 20130219
  Receipt Date: 20130219
  Transmission Date: 20140127
  Serious: No
  Sender: FDA-Public Use
  Company Number: US-BRISTOL-MYERS SQUIBB COMPANY-16397143

PATIENT
  Age: 20 Year
  Sex: Female

DRUGS (10)
  1. ORENCIA [Suspect]
     Indication: JUVENILE IDIOPATHIC ARTHRITIS
     Dosage: LAST INFUSION: 13FEB2012
     Route: 042
     Dates: start: 201111
  2. TRUSOPT [Concomitant]
     Dosage: TRUSOPT EYE DROPS
  3. ALCON-EFRIN [Concomitant]
     Dosage: ALCON EYE DROPS
  4. LUMIGAN [Concomitant]
     Dosage: LUMIGAN EYE DROPS
  5. WELLBUTRIN [Concomitant]
  6. PAXIL [Concomitant]
  7. AMITRIPTYLINE [Concomitant]
  8. VESICARE [Concomitant]
  9. METHOCARBAMOL [Concomitant]
  10. HYDROCORTISONE [Concomitant]
     Dosage: 1DF=2.5%
     Route: 061

REACTIONS (1)
  - Skin discolouration [Unknown]
